FAERS Safety Report 15995960 (Version 1)
Quarter: 2019Q1

REPORT INFORMATION
  Report Type: Spontaneous
  Country: US (occurrence: US)
  Receive Date: 20190222
  Receipt Date: 20190222
  Transmission Date: 20190418
  Serious: No
  Sender: FDA-Public Use
  Company Number: US-PERRIGO-18US008463

PATIENT
  Age: 68 Year
  Sex: Female
  Weight: 56.69 kg

DRUGS (3)
  1. DIGESTIVE ENZYMES                  /02161301/ [Concomitant]
     Active Substance: BETAINE\BROMELAINS\CELLULASE\PANCRELIPASE\PAPAIN
     Indication: PRODUCT USED FOR UNKNOWN INDICATION
     Route: 065
  2. SYNTHROID [Concomitant]
     Active Substance: LEVOTHYROXINE SODIUM
     Indication: HYPOTHYROIDISM
     Route: 048
  3. LOPERAMIDE HYDROCHLORIDE. [Suspect]
     Active Substance: LOPERAMIDE HYDROCHLORIDE
     Indication: DIARRHOEA
     Dosage: 2 TO 4 MG, UNKNOWN
     Route: 048
     Dates: start: 20180812, end: 20180813

REACTIONS (3)
  - Chills [Recovering/Resolving]
  - Nausea [Recovering/Resolving]
  - Decreased appetite [Not Recovered/Not Resolved]

NARRATIVE: CASE EVENT DATE: 20180815
